FAERS Safety Report 5742807-4 (Version None)
Quarter: 2008Q2

REPORT INFORMATION
  Report Type: 
  Country: None (occurrence: None)
  Receive Date: 20080519
  Receipt Date: 20080509
  Transmission Date: 20081010
  Serious: Yes (Hospitalization, Other)
  Sender: FDA-Public Use
  Company Number: US-MERCK-0706USA02111

PATIENT
  Age: 61 Year
  Sex: Female

DRUGS (4)
  1. FOSAMAX [Suspect]
     Indication: OSTEOPOROSIS
     Route: 048
     Dates: start: 20000107, end: 20060415
  2. PLENDIL [Concomitant]
     Indication: HYPERTENSION
     Route: 065
     Dates: start: 19730101
  3. TOPROL-XL [Concomitant]
     Indication: HYPERTENSION
     Route: 065
     Dates: start: 19730101
  4. DIURETIC (UNSPECIFIED) [Concomitant]
     Indication: HYPERTENSION
     Route: 065
     Dates: start: 19730101

REACTIONS (27)
  - ANEURYSM [None]
  - ASTHMA [None]
  - CARPAL TUNNEL SYNDROME [None]
  - CATARACT [None]
  - DYSPHAGIA [None]
  - DYSPNOEA [None]
  - EPILEPSY [None]
  - EUSTACHIAN TUBE DYSFUNCTION [None]
  - GASTROOESOPHAGEAL REFLUX DISEASE [None]
  - HEADACHE [None]
  - JAW DISORDER [None]
  - LUNG NEOPLASM MALIGNANT [None]
  - MENTAL DISORDER [None]
  - MITRAL VALVE INCOMPETENCE [None]
  - NASAL SEPTUM DEVIATION [None]
  - NASAL TURBINATE HYPERTROPHY [None]
  - ORAL HERPES [None]
  - ORAL TORUS [None]
  - OROANTRAL FISTULA [None]
  - OSTEONECROSIS [None]
  - PHARYNGEAL MASS [None]
  - RHINITIS [None]
  - SINUSITIS [None]
  - SYNCOPE [None]
  - THYROID NEOPLASM [None]
  - TOOTH LOSS [None]
  - UTERINE CANCER [None]
